FAERS Safety Report 21259272 (Version 2)
Quarter: 2022Q3

REPORT INFORMATION
  Report Type: Spontaneous
  Country: GR (occurrence: None)
  Receive Date: 20220826
  Receipt Date: 20220908
  Transmission Date: 20221026
  Serious: Yes (Death, Hospitalization)
  Sender: FDA-Public Use
  Company Number: 2022A272394

PATIENT
  Sex: Male

DRUGS (4)
  1. QUETIAPINE [Suspect]
     Active Substance: QUETIAPINE
     Indication: Insomnia
     Dosage: 25MG ONLY ONCE, AT NIGHT, ON 30/06/2022
     Route: 048
     Dates: start: 20220630, end: 20220630
  2. PREGABALIN [Suspect]
     Active Substance: PREGABALIN
     Route: 048
     Dates: start: 202201, end: 20220630
  3. VASTAREL [Concomitant]
     Active Substance: TRIMETAZIDINE DIHYDROCHLORIDE
  4. PALEXIA [Concomitant]
     Active Substance: TAPENTADOL HYDROCHLORIDE

REACTIONS (5)
  - Drug interaction [Unknown]
  - Infection [Fatal]
  - Somnolence [Recovered/Resolved]
  - Hypotension [Unknown]
  - Off label use [Unknown]

NARRATIVE: CASE EVENT DATE: 20220630
